FAERS Safety Report 17083873 (Version 1)
Quarter: 2019Q4

REPORT INFORMATION
  Report Type: Report from Study
  Country: CO (occurrence: CO)
  Receive Date: 20191127
  Receipt Date: 20191127
  Transmission Date: 20200122
  Serious: Yes (Other)
  Sender: FDA-Public Use
  Company Number: NVSC2019CO042870

PATIENT
  Sex: Male

DRUGS (3)
  1. TASIGNA [Suspect]
     Active Substance: NILOTINIB
     Indication: CHRONIC MYELOID LEUKAEMIA
     Dosage: 600 MG, QD
     Route: 048
     Dates: start: 20190916
  2. TASIGNA [Suspect]
     Active Substance: NILOTINIB
     Dosage: 800 MG
     Route: 048
  3. TASIGNA [Suspect]
     Active Substance: NILOTINIB
     Dosage: 600 MG, QD (ONE TABLET IN THE MORNING AND TWO IN THE AFTERNOON\DAILY)
     Route: 048

REACTIONS (6)
  - Malaise [Recovering/Resolving]
  - Bone pain [Recovering/Resolving]
  - Arthralgia [Recovering/Resolving]
  - Renal pain [Recovering/Resolving]
  - Feeling abnormal [Recovering/Resolving]
  - Somnolence [Recovering/Resolving]
